FAERS Safety Report 11512620 (Version 5)
Quarter: 2017Q2

REPORT INFORMATION
  Report Type: Report from Study
  Country: DE (occurrence: DE)
  Receive Date: 20150916
  Receipt Date: 20170613
  Transmission Date: 20170829
  Serious: Yes (Hospitalization, Other)
  Sender: FDA-Public Use
  Company Number: DE-ROCHE-1587446

PATIENT
  Age: 77 Year
  Sex: Female

DRUGS (10)
  1. L-THYROXIN [Concomitant]
     Active Substance: LEVOTHYROXINE SODIUM
     Route: 065
  2. METHOTREXATE. [Concomitant]
     Active Substance: METHOTREXATE
     Indication: RHEUMATOID ARTHRITIS
     Dosage: ON TUESDAYS
     Route: 058
     Dates: start: 2002
  3. ROACTEMRA [Suspect]
     Active Substance: TOCILIZUMAB
     Indication: RHEUMATOID ARTHRITIS
     Dosage: ON THURSDAYS
     Route: 058
     Dates: start: 20150513
  4. MARCUMAR [Concomitant]
     Active Substance: PHENPROCOUMON
     Route: 065
  5. BISOPROLOL [Concomitant]
     Active Substance: BISOPROLOL
     Route: 065
  6. VALSARTAN. [Concomitant]
     Active Substance: VALSARTAN
     Route: 065
  7. PANTOPRAZOL [Concomitant]
     Active Substance: PANTOPRAZOLE SODIUM
     Route: 065
  8. TORASEMID [Concomitant]
     Active Substance: TORSEMIDE
     Indication: HYPERTENSION
     Route: 065
  9. VIGANTOLETTEN [Concomitant]
     Active Substance: CHOLECALCIFEROL
  10. MARCUMAR [Concomitant]
     Active Substance: PHENPROCOUMON
     Route: 065

REACTIONS (11)
  - Nausea [Recovered/Resolved]
  - Injection site swelling [Recovered/Resolved]
  - General physical health deterioration [Not Recovered/Not Resolved]
  - Rheumatoid arthritis [Recovered/Resolved]
  - Paraesthesia [Not Recovered/Not Resolved]
  - Dyspnoea [Not Recovered/Not Resolved]
  - Viral upper respiratory tract infection [Not Recovered/Not Resolved]
  - Musculoskeletal stiffness [Unknown]
  - Dizziness [Recovered/Resolved]
  - Cardiac valve disease [Unknown]
  - Pneumonia [Recovering/Resolving]

NARRATIVE: CASE EVENT DATE: 20150513
